FAERS Safety Report 7087768-3 (Version None)
Quarter: 2010Q4

REPORT INFORMATION
  Report Type: 
  Country: None (occurrence: None)
  Receive Date: 20101108
  Receipt Date: 20101027
  Transmission Date: 20110411
  Serious: Yes (Hospitalization, Other)
  Sender: FDA-Public Use
  Company Number: JP-ELI_LILLY_AND_COMPANY-JP201010006575

PATIENT
  Age: 45 Year
  Sex: Male

DRUGS (2)
  1. LISPRO [Suspect]
     Indication: TYPE 2 DIABETES MELLITUS
     Dosage: UNK, 3/D
     Route: 058
  2. LISPRO [Suspect]
     Dosage: 400 IU, OTHER
     Route: 058
     Dates: start: 20090301, end: 20090301

REACTIONS (3)
  - HYPOGLYCAEMIA [None]
  - HYPOKALAEMIA [None]
  - SUICIDE ATTEMPT [None]
